FAERS Safety Report 16912129 (Version 1)
Quarter: 2019Q4

REPORT INFORMATION
  Report Type: Spontaneous
  Country: JP (occurrence: JP)
  Receive Date: 20191014
  Receipt Date: 20191014
  Transmission Date: 20200122
  Serious: Yes (Other)
  Sender: FDA-Public Use
  Company Number: JP-009507513-1910JPN000859J

PATIENT
  Age: 73 Year
  Sex: Female
  Weight: 39 kg

DRUGS (3)
  1. ROCURONIUM BROMIDE. [Concomitant]
     Active Substance: ROCURONIUM BROMIDE
     Dosage: 25 MILLIGRAM
     Route: 065
  2. PROPOFOL. [Concomitant]
     Active Substance: PROPOFOL
     Dosage: 40 MILLIGRAM
     Route: 065
  3. BRIDION [Suspect]
     Active Substance: SUGAMMADEX
     Indication: NEUROMUSCULAR BLOCKADE REVERSAL
     Dosage: 200 MILLIGRAM, QD
     Route: 042

REACTIONS (2)
  - Depressed level of consciousness [Recovered/Resolved]
  - Dyspnoea [Recovered/Resolved]
